FAERS Safety Report 5255015-0 (Version None)
Quarter: 2007Q1

REPORT INFORMATION
  Report Type: 
  Country: None (occurrence: None)
  Receive Date: 20070228
  Receipt Date: 20070213
  Transmission Date: 20070707
  Serious: Yes (Hospitalization)
  Sender: FDA-Public Use
  Company Number: 2007BI001387

PATIENT
  Age: 38 Year
  Sex: Female

DRUGS (8)
  1. AVONEX [Suspect]
     Indication: MULTIPLE SCLEROSIS
     Dosage: 15 UG; QW; IM
     Route: 030
     Dates: start: 20061205, end: 20061215
  2. LEVOXYL [Concomitant]
  3. LISINOPRIL [Concomitant]
  4. NORVASC [Concomitant]
  5. ANTIVENT [Concomitant]
  6. MAXAIR [Concomitant]
  7. KLONIPIN [Concomitant]
  8. XANAX [Concomitant]

REACTIONS (3)
  - ANGIOPATHY [None]
  - AURICULAR SWELLING [None]
  - STAPHYLOCOCCAL INFECTION [None]
